FAERS Safety Report 4904812-7 (Version None)
Quarter: 2006Q1

REPORT INFORMATION
  Report Type: 
  Country: None (occurrence: None)
  Receive Date: 20060207
  Receipt Date: 20060207
  Transmission Date: 20060701
  Serious: No
  Sender: FDA-Public Use
  Company Number: None

PATIENT
  Age: 41 Year
  Sex: Female
  Weight: 81.6475 kg

DRUGS (1)
  1. FEMRING [Suspect]
     Indication: MENOPAUSE
     Dosage: 1 RING INTRAVAGINALLY Q 90 DAYS
     Route: 067

REACTIONS (4)
  - DRUG INEFFECTIVE [None]
  - HOT FLUSH [None]
  - MOOD SWINGS [None]
  - NIGHT SWEATS [None]
